FAERS Safety Report 20753111 (Version 1)
Quarter: 2022Q2

REPORT INFORMATION
  Report Type: Spontaneous
  Country: US (occurrence: None)
  Receive Date: 20220426
  Receipt Date: 20220426
  Transmission Date: 20220720
  Serious: No
  Sender: FDA-Public Use
  Company Number: US-ROCHE-2996084

PATIENT
  Sex: Male

DRUGS (1)
  1. ESBRIET [Suspect]
     Active Substance: PIRFENIDONE
     Indication: Product used for unknown indication
     Dosage: TAKE 1 TAB THRICE DAILY FOR 1 WEEK, THEN 2 TABS THRICE DAILY FOR 1 WEEK, THEN 3 TABS THRICE DAILY WI
     Route: 048

REACTIONS (1)
  - Fatigue [Unknown]
